FAERS Safety Report 24647193 (Version 2)
Quarter: 2024Q4

REPORT INFORMATION
  Report Type: Spontaneous
  Country: CH (occurrence: CH)
  Receive Date: 20241121
  Receipt Date: 20241226
  Transmission Date: 20250115
  Serious: Yes (Other)
  Sender: PFIZER
  Company Number: None

PATIENT
  Age: 70 Year
  Sex: Female

DRUGS (10)
  1. ZITHROMAX [Suspect]
     Active Substance: AZITHROMYCIN DIHYDRATE
     Dosage: 250 MG, 3X/WEEK
     Route: 048
  2. PERINDOPRIL [Suspect]
     Active Substance: PERINDOPRIL
     Dosage: 2 MG, 1X/DAY
     Route: 048
  3. PRAVASTATIN [Suspect]
     Active Substance: PRAVASTATIN
     Dosage: 10 MG, 1X/DAY
  4. TRAMADOL [Suspect]
     Active Substance: TRAMADOL
     Dosage: 3X5 DROPS/DAY, IN RESERVE
     Dates: start: 202403
  5. TRAMADOL [Suspect]
     Active Substance: TRAMADOL
     Dosage: 3X5 DROPS/DAY
     Dates: start: 2024
  6. METOPROLOL TARTRATE [Suspect]
     Active Substance: METOPROLOL TARTRATE
     Dosage: 25 MG, 1X/DAY
     Route: 048
  7. BACTRIM [Suspect]
     Active Substance: SULFAMETHOXAZOLE\TRIMETHOPRIM
     Dosage: 1 DF ([TRIMETHOPRIM 160 MG]/[SULFAMETHOXAZOLE 800 MG], 3X/WEEK)
     Route: 048
  8. TORSEMIDE [Suspect]
     Active Substance: TORSEMIDE
     Dosage: 10 MG, 1X/DAY
     Route: 048
  9. ROSUVASTATIN [Concomitant]
     Active Substance: ROSUVASTATIN
     Dosage: UNK
     Dates: start: 2018
  10. SULFAMETHOXAZOLE\TRIMETHOPRIM [Concomitant]
     Active Substance: SULFAMETHOXAZOLE\TRIMETHOPRIM
     Dosage: UNK

REACTIONS (2)
  - Toxic neuropathy [Unknown]
  - Off label use [Unknown]

NARRATIVE: CASE EVENT DATE: 20240101
